FAERS Safety Report 16967585 (Version 2)
Quarter: 2019Q4

REPORT INFORMATION
  Report Type: Spontaneous
  Country: US (occurrence: US)
  Receive Date: 20191028
  Receipt Date: 20191028
  Transmission Date: 20200122
  Serious: Yes (Other)
  Sender: FDA-Public Use
  Company Number: US-JUBILANT PHARMA LTD-2019US001085

PATIENT
  Sex: Female

DRUGS (1)
  1. DRAXIMAGE MDP-25 [Suspect]
     Active Substance: TECHNETIUM TC-99M MEDRONATE
     Indication: BONE SCAN
     Dosage: 30 MCI, SINGLE DOSE
     Route: 042
     Dates: start: 20190808, end: 20190808

REACTIONS (3)
  - Anaphylactic reaction [Recovered/Resolved]
  - Pharyngeal swelling [Recovered/Resolved]
  - Throat tightness [Recovered/Resolved]

NARRATIVE: CASE EVENT DATE: 20190808
